FAERS Safety Report 4659964-3 (Version None)
Quarter: 2005Q2

REPORT INFORMATION
  Report Type: 
  Country: None (occurrence: None)
  Receive Date: 20050502
  Receipt Date: 20050311
  Transmission Date: 20051028
  Serious: Yes (Hospitalization)
  Sender: FDA-Public Use
  Company Number: USA050393051

PATIENT
  Age: 24 Year
  Sex: Female

DRUGS (1)
  1. SYMBYAX-OLANZAPINE 6MG / FLUOXETINE 50MG (OLANAZPIN [Suspect]
     Indication: BIPOLAR I DISORDER
     Dosage: 1 DAG FROM DAY
     Dates: start: 20040501, end: 20050301

REACTIONS (4)
  - CONVULSION [None]
  - DRUG INEFFECTIVE [None]
  - INTENTIONAL MISUSE [None]
  - WEIGHT INCREASED [None]
